FAERS Safety Report 5236702-7 (Version None)
Quarter: 2007Q1

REPORT INFORMATION
  Report Type: 
  Country: None (occurrence: None)
  Receive Date: 20070209
  Receipt Date: 20070124
  Transmission Date: 20070707
  Serious: Yes (Hospitalization)
  Sender: FDA-Public Use
  Company Number: S07-FRA-00238-01

PATIENT
  Sex: Male

DRUGS (3)
  1. SEROPLEX (ESCITALOPRAM) [Suspect]
  2. XANAX [Concomitant]
  3. IMOVANE (ZOPICLONE) [Concomitant]

REACTIONS (1)
  - HEPATITIS [None]
